FAERS Safety Report 4591682-2 (Version None)
Quarter: 2005Q1

REPORT INFORMATION
  Report Type: 
  Country: None (occurrence: None)
  Receive Date: 20050218
  Receipt Date: 20050208
  Transmission Date: 20050727
  Serious: Yes (Hospitalization)
  Sender: FDA-Public Use
  Company Number: 2004110369

PATIENT
  Age: 74 Year
  Sex: Female
  Weight: 81.6475 kg

DRUGS (5)
  1. DETROL LA [Suspect]
     Indication: HYPERTONIC BLADDER
     Dosage: 4 MG (4 MG, DAILY INVERVAL: EVERY DAY)
     Dates: start: 20021201
  2. ASCORBIC ACID/COPPER/TOCOPHEROL/ZINC (ASCORBIC ACID, COPPER, TOCOPHERO [Concomitant]
  3. ARTHROTEC [Concomitant]
  4. CEPHALEXIN [Concomitant]
  5. LOPERAMIDE HYDROCHLORIDE [Concomitant]

REACTIONS (5)
  - BLADDER PROLAPSE [None]
  - NOCTURIA [None]
  - POST PROCEDURAL PAIN [None]
  - SLEEP DISORDER [None]
  - SOMNOLENCE [None]
